FAERS Safety Report 8120031-8 (Version None)
Quarter: 2011Q4

REPORT INFORMATION
  Report Type: 
  Country: None (occurrence: None)
  Receive Date: 20111227
  Receipt Date: 20110831
  Transmission Date: 20120403
  Serious: No
  Sender: FDA-Public Use
  Company Number: PHHY2011US43938

PATIENT
  Age: 56 Year
  Sex: Male
  Weight: 72.6 kg

DRUGS (8)
  1. GILENYA [Suspect]
     Indication: MULTIPLE SCLEROSIS
     Dosage: 0.5 MG, DAILY, ORAL
     Route: 048
     Dates: start: 20110427
  2. OSCAL (CALCIUM CARBONATE) [Concomitant]
  3. ASCORBIC ACID [Concomitant]
  4. COUMADIN [Concomitant]
  5. VESICUM (IBUPROFEN PICONOL) [Concomitant]
  6. VITAMIN B12 [Concomitant]
  7. ZANAFLEX [Concomitant]
  8. FLOMAX [Concomitant]

REACTIONS (6)
  - FALL [None]
  - MUSCULAR WEAKNESS [None]
  - ASTHENIA [None]
  - FATIGUE [None]
  - ENERGY INCREASED [None]
  - MOBILITY DECREASED [None]
